FAERS Safety Report 8605464-5 (Version None)
Quarter: 2012Q3

REPORT INFORMATION
  Report Type: 
  Country: None (occurrence: None)
  Receive Date: 20120820
  Receipt Date: 20120810
  Transmission Date: 20120928
  Serious: Yes (Hospitalization)
  Sender: FDA-Public Use
  Company Number: IT-JNJFOC-20120806107

PATIENT
  Sex: Male

DRUGS (3)
  1. HALOPERIDOL [Suspect]
     Indication: SUICIDE ATTEMPT
     Route: 048
     Dates: start: 20120522, end: 20120522
  2. ENTUMIN [Suspect]
     Indication: SUICIDE ATTEMPT
     Route: 048
     Dates: start: 20120522, end: 20120522
  3. PROMAZINE HYDROCHLORIDE [Suspect]
     Indication: SUICIDE ATTEMPT
     Route: 048
     Dates: start: 20120522, end: 20120522

REACTIONS (5)
  - OLIGURIA [None]
  - MULTIPLE DRUG OVERDOSE [None]
  - AGITATION [None]
  - HYPOKINESIA [None]
  - SUICIDE ATTEMPT [None]
